FAERS Safety Report 5741735-8 (Version None)
Quarter: 2008Q2

REPORT INFORMATION
  Report Type: 
  Country: None (occurrence: None)
  Receive Date: 20080519
  Receipt Date: 20070111
  Transmission Date: 20081010
  Serious: Yes (Life-Threatening, Other)
  Sender: FDA-Public Use
  Company Number: US-BAYER-US-2006-038876

PATIENT
  Age: 58 Year
  Sex: Male

DRUGS (1)
  1. ULTRAVIST 300 [Suspect]
     Indication: COMPUTERISED TOMOGRAM THORAX
     Dosage: UNIT DOSE: 150 ML
     Route: 042
     Dates: start: 20061207, end: 20061207

REACTIONS (8)
  - CONTRAST MEDIA REACTION [None]
  - DYSPNOEA [None]
  - ELECTROCARDIOGRAM ABNORMAL [None]
  - ERYTHEMA [None]
  - HYPOTENSION [None]
  - LETHARGY [None]
  - TACHYCARDIA [None]
  - TREMOR [None]
